FAERS Safety Report 9992459 (Version 1)
Quarter: 2014Q1

REPORT INFORMATION
  Report Type: Spontaneous
  Country: PL (occurrence: PL)
  Receive Date: 20140310
  Receipt Date: 20140310
  Transmission Date: 20141002
  Serious: Yes (Other)
  Sender: FDA-Public Use
  Company Number: PL-GLAXOSMITHKLINE-B0975093A

PATIENT
  Age: 42 Year
  Sex: Female

DRUGS (5)
  1. NEOTIGASON [Suspect]
     Indication: PUSTULAR PSORIASIS
     Dosage: 10MG PER DAY
     Route: 048
  2. SANDIMMUN NEORAL [Concomitant]
  3. ENCORTON [Concomitant]
  4. AUGMENTIN [Concomitant]
     Dates: end: 20050823
  5. NSAIDS [Concomitant]

REACTIONS (2)
  - Abortion spontaneous [Unknown]
  - Exposure during pregnancy [Unknown]
